FAERS Safety Report 12481584 (Version 7)
Quarter: 2018Q2

REPORT INFORMATION
  Report Type: Spontaneous
  Country: IT (occurrence: IT)
  Receive Date: 20160620
  Receipt Date: 20180528
  Transmission Date: 20180711
  Serious: Yes (Death, Life-Threatening, Hospitalization, Other)
  Sender: FDA-Public Use
  Company Number: PHHY2016IT081398

PATIENT
  Age: 82 Year
  Sex: Female

DRUGS (16)
  1. FENTANYL. [Interacting]
     Active Substance: FENTANYL
     Indication: ANGIOPATHY
     Dosage: 100 UG, UNK
     Route: 048
     Dates: start: 20150602, end: 20150602
  2. LEVOFLOXACIN. [Interacting]
     Active Substance: LEVOFLOXACIN
     Dosage: MAINTENANCE DOSE
     Route: 048
     Dates: start: 20150522
  3. FENTANYL. [Interacting]
     Active Substance: FENTANYL
     Dosage: 12 UG, UNK
     Route: 062
     Dates: start: 20150521, end: 20150528
  4. FENTANYL. [Interacting]
     Active Substance: FENTANYL
     Dosage: 100 DF, UNK
     Route: 048
     Dates: start: 20150602, end: 20150602
  5. VANCOMYCIN [Concomitant]
     Active Substance: VANCOMYCIN
     Indication: STAPHYLOCOCCAL INFECTION
     Dosage: UNK, BY A SWAB APPLIED TO A LEFT FOOT ULCER POSITIVE FOR STAPHYLOCOCCUS AUREUS
     Route: 061
  6. LEVOFLOXACIN. [Interacting]
     Active Substance: LEVOFLOXACIN
     Dosage: 125 MG, UNK
     Route: 048
     Dates: start: 20150522
  7. FENTANYL. [Interacting]
     Active Substance: FENTANYL
     Indication: PAIN IN EXTREMITY
     Dosage: 25 UG, QH
     Route: 062
     Dates: start: 20150528, end: 20150602
  8. FENTANYL. [Interacting]
     Active Substance: FENTANYL
     Dosage: 25 UG, UNK
     Route: 062
     Dates: start: 20150528, end: 20150606
  9. VANCOMYCIN [Concomitant]
     Active Substance: VANCOMYCIN
     Dosage: 500 MG, MAINTENANCE DOSE; AT THE END OF DIALYSIS
     Route: 042
  10. LEVOFLOXACIN. [Suspect]
     Active Substance: LEVOFLOXACIN
     Indication: STAPHYLOCOCCAL SKIN INFECTION
     Dosage: 500 MG, UNK
     Route: 048
     Dates: start: 20150521
  11. FENTANYL. [Interacting]
     Active Substance: FENTANYL
     Indication: PROCEDURAL PAIN
     Dosage: 200 UG, UNK
     Route: 048
     Dates: start: 20150521
  12. FENTANYL. [Interacting]
     Active Substance: FENTANYL
     Dosage: 25 DF
     Route: 062
     Dates: start: 20150521
  13. VANCOMYCIN [Concomitant]
     Active Substance: VANCOMYCIN
     Indication: STAPHYLOCOCCAL SKIN INFECTION
     Dosage: 1 G, UNK
     Route: 042
  14. LEVOFLOXACIN. [Interacting]
     Active Substance: LEVOFLOXACIN
     Dosage: LOADING DOSE
     Route: 048
     Dates: start: 20150521, end: 20150521
  15. FENTANYL. [Interacting]
     Active Substance: FENTANYL
     Dosage: 25 UG, UNK
     Route: 062
     Dates: start: 20150528, end: 20150602
  16. RIFAMPICIN [Interacting]
     Active Substance: RIFAMPIN
     Indication: STAPHYLOCOCCAL SKIN INFECTION
     Dosage: 300 MG, QD
     Route: 065
     Dates: start: 20150521

REACTIONS (19)
  - Somnolence [Recovered/Resolved]
  - Generalised non-convulsive epilepsy [Fatal]
  - Sepsis [Fatal]
  - Miosis [Recovered/Resolved]
  - Somnolence [Recovering/Resolving]
  - Prescribed overdose [Fatal]
  - Altered state of consciousness [Recovered/Resolved]
  - Status epilepticus [Recovered/Resolved]
  - Therapy naive [Unknown]
  - Drug ineffective [Unknown]
  - Toxicity to various agents [Unknown]
  - Tremor [Recovered/Resolved]
  - Sopor [Recovered/Resolved]
  - Off label use [Unknown]
  - Overdose [Unknown]
  - Pyrexia [Fatal]
  - Drug interaction [Unknown]
  - Depressed level of consciousness [Recovered/Resolved]
  - Hallucination [Recovering/Resolving]

NARRATIVE: CASE EVENT DATE: 20150602
